FAERS Safety Report 5383670-3 (Version None)
Quarter: 2007Q3

REPORT INFORMATION
  Report Type: 
  Country: None (occurrence: None)
  Receive Date: 20070706
  Receipt Date: 20070620
  Transmission Date: 20080115
  Serious: Yes (Hospitalization)
  Sender: FDA-Public Use
  Company Number: ACO_00355_2007

PATIENT
  Age: 45 Year
  Sex: Female
  Weight: 90.7194 kg

DRUGS (1)
  1. ZANAFLEX [Suspect]
     Indication: DYSTONIA
     Dosage: ORAL
     Route: 048

REACTIONS (1)
  - PULMONARY THROMBOSIS [None]
